FAERS Safety Report 12551003 (Version 1)
Quarter: 2016Q3

REPORT INFORMATION
  Report Type: Spontaneous
  Country: SG (occurrence: SG)
  Receive Date: 20160713
  Receipt Date: 20160713
  Transmission Date: 20161109
  Serious: Yes (Other)
  Sender: FDA-Public Use
  Company Number: SG-BAXTER-2016BAX035683

PATIENT

DRUGS (1)
  1. PLASMA-LYTE A [Suspect]
     Active Substance: MAGNESIUM CHLORIDE\POTASSIUM CHLORIDE\SODIUM ACETATE\SODIUM CHLORIDE\SODIUM GLUCONATE
     Indication: PRODUCT USED FOR UNKNOWN INDICATION
     Dosage: INFUSED ABOUT MORE THAN 5 LITERS
     Route: 065

REACTIONS (1)
  - Hypocalcaemia [Unknown]
